FAERS Safety Report 10019578 (Version 1)
Quarter: 2014Q1

REPORT INFORMATION
  Report Type: Spontaneous
  Country: BR (occurrence: BR)
  Receive Date: 20140318
  Receipt Date: 20140318
  Transmission Date: 20141002
  Serious: Yes (Disabling, Other)
  Sender: FDA-Public Use
  Company Number: BR-ELI_LILLY_AND_COMPANY-BR201403002103

PATIENT
  Age: 71 Year
  Sex: Male

DRUGS (2)
  1. HUMALOG MIX 25 [Suspect]
     Indication: DIABETES MELLITUS
     Dosage: 28 IU, EACH MORNING
     Route: 058
     Dates: start: 201203
  2. HUMALOG MIX 25 [Suspect]
     Dosage: UNK UNK, EACH EVENING
     Route: 058
     Dates: start: 201203

REACTIONS (2)
  - Blindness unilateral [Not Recovered/Not Resolved]
  - Cataract [Not Recovered/Not Resolved]
